FAERS Safety Report 18119832 (Version 1)
Quarter: 2020Q3

REPORT INFORMATION
  Report Type: Spontaneous
  Country: US (occurrence: US)
  Receive Date: 20200806
  Receipt Date: 20200806
  Transmission Date: 20201103
  Serious: No
  Sender: FDA-Public Use
  Company Number: US-009507513-2007USA011601

PATIENT
  Age: 20 Year
  Sex: Female

DRUGS (3)
  1. CELESTONE SOLUSPAN [Suspect]
     Active Substance: BETAMETHASONE ACETATE\BETAMETHASONE SODIUM PHOSPHATE
     Indication: FOETAL HEART RATE DECELERATION ABNORMALITY
     Dosage: TWO DOSES
  2. IRON (UNSPECIFIED) [Concomitant]
     Active Substance: IRON
     Indication: PAIN
  3. MORPHINE [Concomitant]
     Active Substance: MORPHINE
     Indication: PAIN

REACTIONS (1)
  - Maternal exposure during pregnancy [Unknown]
